FAERS Safety Report 7340904-3 (Version None)
Quarter: 2011Q1

REPORT INFORMATION
  Report Type: 
  Country: None (occurrence: None)
  Receive Date: 20110309
  Receipt Date: 20100511
  Transmission Date: 20110831
  Serious: No
  Sender: FDA-Public Use
  Company Number: US-ABBOTT-10P-163-0644936-00

PATIENT
  Sex: Female
  Weight: 77.18 kg

DRUGS (4)
  1. MICARDIS [Concomitant]
     Indication: HYPERTENSION
  2. LOTREL [Concomitant]
     Indication: HYPERTENSION
  3. LUPRON DEPOT [Suspect]
     Indication: UTERINE LEIOMYOMA
     Dates: start: 20100419
  4. VITAMIN D [Concomitant]
     Indication: VITAMIN SUPPLEMENTATION

REACTIONS (1)
  - MENSTRUAL DISORDER [None]
